FAERS Safety Report 5827358-0 (Version None)
Quarter: 2008Q3

REPORT INFORMATION
  Report Type: 
  Country: None (occurrence: None)
  Receive Date: 20080730
  Receipt Date: 20080721
  Transmission Date: 20090109
  Serious: Yes (Death, Other)
  Sender: FDA-Public Use
  Company Number: NL-AMGEN-US296662

PATIENT
  Age: 69 Year
  Sex: Female
  Weight: 64 kg

DRUGS (7)
  1. ENBREL [Suspect]
     Indication: RHEUMATOID ARTHRITIS
     Route: 065
     Dates: start: 20031101, end: 20080115
  2. METOJECT [Suspect]
     Indication: RHEUMATOID ARTHRITIS
     Route: 058
     Dates: start: 19990201, end: 20080124
  3. PREDNISONE [Suspect]
     Dosage: VARYING DOSES
     Route: 030
     Dates: start: 19991001, end: 20021001
  4. HUMIRA [Suspect]
     Indication: RHEUMATOID ARTHRITIS
     Dosage: UNK
     Route: 065
     Dates: start: 20030201, end: 20031001
  5. ACETAMINOPHEN [Concomitant]
     Dosage: 500 MG WHENEVER NECESSARY
     Route: 065
  6. NAPROXEN [Concomitant]
     Dosage: 500 MG: WHENEVER NECESSARY
     Route: 065
     Dates: start: 20000101
  7. ACTONEL [Concomitant]
     Route: 065
     Dates: start: 20040501

REACTIONS (2)
  - NON-SMALL CELL LUNG CANCER METASTATIC [None]
  - PANCREATITIS [None]
